FAERS Safety Report 22097512 (Version 1)
Quarter: 2023Q1

REPORT INFORMATION
  Report Type: Report from Study
  Country: US (occurrence: None)
  Receive Date: 20230315
  Receipt Date: 20230315
  Transmission Date: 20230418
  Serious: Yes (Death)
  Sender: FDA-Public Use
  Company Number: US-ROCHE-3308639

PATIENT

DRUGS (3)
  1. ATEZOLIZUMAB [Suspect]
     Active Substance: ATEZOLIZUMAB
     Indication: Renal cell carcinoma
     Dosage: ON 27/SEP/2019, LAST DOSE OF STUDY DRUG ADMINISTERED.
     Route: 065
     Dates: start: 20190517
  2. BEVACIZUMAB [Suspect]
     Active Substance: BEVACIZUMAB
     Indication: Renal cell carcinoma
     Dosage: ON 27/SEP/2019, LAST DOSE OF STUDY DRUG ADMINISTERED.
     Route: 065
     Dates: start: 20190517
  3. ENTINOSTAT [Suspect]
     Active Substance: ENTINOSTAT
     Indication: Renal cell carcinoma
     Dosage: ON 27/SEP/2019, LAST DOSE OF STUDY DRUG ADMINISTERED.
     Route: 065
     Dates: start: 20190517

REACTIONS (1)
  - Death [Fatal]
